FAERS Safety Report 19024136 (Version 1)
Quarter: 2021Q1

REPORT INFORMATION
  Report Type: Spontaneous
  Country: BE (occurrence: BE)
  Receive Date: 20210318
  Receipt Date: 20210318
  Transmission Date: 20210420
  Serious: Yes (Hospitalization)
  Sender: FDA-Public Use
  Company Number: BE-AMGEN-BELSP2021039814

PATIENT
  Age: 61 Year
  Sex: Male
  Weight: 92 kg

DRUGS (7)
  1. PANITUMUMAB [Suspect]
     Active Substance: PANITUMUMAB
     Indication: PRODUCT USED FOR UNKNOWN INDICATION
     Dosage: 6 MILLIGRAM/KILOGRAM
     Route: 042
     Dates: start: 20210201, end: 20210201
  2. ALOXI [Concomitant]
     Active Substance: PALONOSETRON HYDROCHLORIDE
     Dosage: UNK
     Route: 042
     Dates: start: 20210201, end: 20210201
  3. PYRIDOXINE [Concomitant]
     Active Substance: PYRIDOXINE
     Dosage: 250 MILLIGRAM, QD
     Dates: start: 20210118
  4. ESTIVAN [Concomitant]
     Dosage: 1 DOSAGE FORM, QD
     Dates: start: 20210201, end: 20210201
  5. OXALIPLATINE [Suspect]
     Active Substance: OXALIPLATIN
     Indication: ADENOCARCINOMA OF COLON
     Dosage: 85 MILLIGRAM/SQ. METER SELON SCHEMA CRC
     Route: 042
     Dates: start: 20210201, end: 20210201
  6. TETRALYSAL [TETRACYCLINE] [Concomitant]
     Active Substance: TETRACYCLINE
     Indication: ACNE
     Dosage: 1 DOSAGE FORM, QD
     Dates: start: 20210118
  7. SOLU?MEDROL [Concomitant]
     Active Substance: METHYLPREDNISOLONE SODIUM SUCCINATE
     Dosage: 80 MILLIGRAM, QD
     Route: 042
     Dates: start: 20210201, end: 20210201

REACTIONS (4)
  - Hypoxia [Recovered/Resolved]
  - Pruritus [Recovered/Resolved]
  - Erythema [Recovered/Resolved]
  - Bronchospasm [Recovered/Resolved]

NARRATIVE: CASE EVENT DATE: 20210201
